FAERS Safety Report 6955435-X (Version None)
Quarter: 2010Q3

REPORT INFORMATION
  Report Type: 
  Country: None (occurrence: None)
  Receive Date: 20100830
  Receipt Date: 20100818
  Transmission Date: 20110219
  Serious: Yes (Hospitalization)
  Sender: FDA-Public Use
  Company Number: US-ELI_LILLY_AND_COMPANY-US201007006136

PATIENT
  Sex: Male
  Weight: 85.351 kg

DRUGS (13)
  1. PEMETREXED [Suspect]
     Indication: NON-SMALL CELL LUNG CANCER STAGE IV
     Dosage: 500 MG/M2, OTHER
     Route: 042
     Dates: start: 20091104
  2. CARBOPLATIN [Suspect]
     Indication: NON-SMALL CELL LUNG CANCER STAGE IV
     Dosage: 6 D/F, OTHER
     Route: 042
     Dates: start: 20091104, end: 20100106
  3. BEVACIZUMAB [Suspect]
     Indication: NON-SMALL CELL LUNG CANCER STAGE IV
     Dosage: 15 MG/KG, OTHER
     Route: 042
     Dates: start: 20091104
  4. ATROVENT [Concomitant]
     Indication: CHRONIC OBSTRUCTIVE PULMONARY DISEASE
     Dates: start: 20050101
  5. SPIRIVA [Concomitant]
     Indication: CHRONIC OBSTRUCTIVE PULMONARY DISEASE
     Dates: start: 20050101
  6. TOPROL-XL [Concomitant]
     Indication: HYPERTENSION
     Dates: start: 19890101
  7. FOLIC ACID [Concomitant]
     Indication: PROPHYLAXIS
     Dates: start: 20091027
  8. GLUCOTROL [Concomitant]
     Indication: DIABETES MELLITUS
     Dates: start: 20010101
  9. LANTUS [Concomitant]
     Indication: DIABETES MELLITUS
     Dates: start: 20010101
  10. FUROSEMIDE [Concomitant]
     Indication: OEDEMA
     Dates: start: 20100701
  11. ZESTRA [Concomitant]
     Indication: HYPERTENSION
     Dates: start: 19890101
  12. PRILOSEC [Concomitant]
     Indication: GASTROOESOPHAGEAL REFLUX DISEASE
     Dates: start: 20090801
  13. ZOCOR [Concomitant]
     Indication: BLOOD CHOLESTEROL
     Dates: start: 20050101

REACTIONS (1)
  - PNEUMONIA [None]
